FAERS Safety Report 20701403 (Version 1)
Quarter: 2022Q2

REPORT INFORMATION
  Report Type: Report from Study
  Country: EG (occurrence: EG)
  Receive Date: 20220412
  Receipt Date: 20220412
  Transmission Date: 20220721
  Serious: Yes (Death, Hospitalization)
  Sender: FDA-Public Use
  Company Number: EG-JNJFOC-20210834608

PATIENT
  Age: 56 Year
  Sex: Male
  Weight: 128 kg

DRUGS (4)
  1. DARZALEX [Suspect]
     Active Substance: DARATUMUMAB
     Indication: Plasma cell myeloma
     Route: 042
     Dates: start: 20210809
  2. VELCADE [Suspect]
     Active Substance: BORTEZOMIB
     Indication: Plasma cell myeloma
     Route: 065
     Dates: start: 202112, end: 20220330
  3. HYDROCORTISONE [Suspect]
     Active Substance: HYDROCORTISONE
     Indication: Plasma cell myeloma
     Route: 065
     Dates: start: 20220320, end: 20220401
  4. DEXAMETHASONE [Concomitant]
     Active Substance: DEXAMETHASONE
     Indication: Plasma cell myeloma
     Route: 065

REACTIONS (9)
  - Cardiac failure [Fatal]
  - Respiratory failure [Fatal]
  - Renal failure [Fatal]
  - Pulmonary oedema [Recovering/Resolving]
  - Oedema peripheral [Recovering/Resolving]
  - Abdominal pain upper [Recovering/Resolving]
  - Inflammation [Recovering/Resolving]
  - Myalgia [Unknown]
  - Wrong dose [Recovered/Resolved]

NARRATIVE: CASE EVENT DATE: 20210809
